FAERS Safety Report 5097992-7 (Version None)
Quarter: 2006Q3

REPORT INFORMATION
  Report Type: 
  Country: None (occurrence: None)
  Receive Date: 20060905
  Receipt Date: 20060606
  Transmission Date: 20061208
  Serious: Yes (Other)
  Sender: FDA-Public Use
  Company Number: 2006VX000677

PATIENT
  Age: 60 Year
  Sex: Male

DRUGS (5)
  1. FLURAZEPAM HYDROCHLORIDE [Suspect]
     Dosage: 300 MG; PO
     Route: 048
  2. BISOPROLOL FUMARATE [Suspect]
  3. LORAZEPAM [Suspect]
     Dosage: 375 MG; PO
     Route: 048
  4. BISOPROLOL FUMARATE [Concomitant]
  5. TAVOR [Concomitant]

REACTIONS (2)
  - LOSS OF CONSCIOUSNESS [None]
  - SUICIDE ATTEMPT [None]
